FAERS Safety Report 17563384 (Version 1)
Quarter: 2020Q1

REPORT INFORMATION
  Report Type: Spontaneous
  Country: US (occurrence: US)
  Receive Date: 20200319
  Receipt Date: 20200319
  Transmission Date: 20200409
  Serious: No
  Sender: FDA-Public Use
  Company Number: US-CATALYST PHARMACEUTICALS, INC-2019CAT00688

PATIENT
  Age: 73 Year
  Sex: Male
  Weight: 95.24 kg

DRUGS (11)
  1. VITAMIN D [Concomitant]
     Active Substance: VITAMIN D NOS
  2. MULTIVITAMIN [Concomitant]
     Active Substance: VITAMINS
  3. MIRALAX [Concomitant]
     Active Substance: POLYETHYLENE GLYCOL 3350
     Dosage: EVERY DAY
  4. FUROSEMIDE. [Concomitant]
     Active Substance: FUROSEMIDE
     Dosage: 20 MG
  5. ALPHA LIPOIC ACID [Concomitant]
     Active Substance: .ALPHA.-LIPOIC ACID
     Indication: NEUROPATHY PERIPHERAL
  6. ATENOLOL. [Concomitant]
     Active Substance: ATENOLOL
  7. FIRDAPSE [Suspect]
     Active Substance: AMIFAMPRIDINE
     Indication: MYASTHENIC SYNDROME
     Dosage: 10 MG, 1X/DAY
     Route: 048
     Dates: start: 201912, end: 201912
  8. FIRDAPSE [Suspect]
     Active Substance: AMIFAMPRIDINE
     Dosage: 20 MG, 1X/DAY (^2 A DAY^)
     Route: 048
     Dates: start: 201912, end: 201912
  9. FIRDAPSE [Suspect]
     Active Substance: AMIFAMPRIDINE
     Dosage: 10 MG, 3X/DAY
     Route: 048
     Dates: start: 201912, end: 20191217
  10. FISH OIL [Concomitant]
     Active Substance: FISH OIL
     Dosage: EVERY DAY
  11. OMEPRAZOLE. [Concomitant]
     Active Substance: OMEPRAZOLE
     Dosage: UNK, AS NEEDED

REACTIONS (5)
  - Blood pressure increased [Not Recovered/Not Resolved]
  - Erythema [Recovered/Resolved]
  - Balance disorder [Not Recovered/Not Resolved]
  - Drug ineffective [Recovered/Resolved]
  - Asthenia [Unknown]

NARRATIVE: CASE EVENT DATE: 201912
